FAERS Safety Report 10550773 (Version 2)
Quarter: 2015Q1

REPORT INFORMATION
  Report Type: Spontaneous
  Country: FR (occurrence: None)
  Receive Date: 20141027
  Receipt Date: 20150120
  Transmission Date: 20150720
  Serious: Yes (Other)
  Sender: FDA-Public Use
  Company Number: 20142213

PATIENT
  Age: 67 Year
  Sex: Male

DRUGS (5)
  1. VENTOLIN [Concomitant]
     Active Substance: ALBUTEROL SULFATE
  2. FOLIC ACID (FOLIC ACID) [Concomitant]
     Active Substance: FOLIC ACID
  3. METOJECT (METHOTREXATE) [Suspect]
     Active Substance: METHOTREXATE SODIUM
     Indication: RHEUMATOID ARTHRITIS
     Dosage: X 15 MILLIGRAM IN 1 WEEK, SUBCUTANEOUS
     Route: 058
     Dates: end: 20141009
  4. ONBREZ 300 (INDACATEROL MALEATE) [Concomitant]
  5. AIROMIR/SALBUTAMOL SULFATE [Concomitant]

REACTIONS (2)
  - Weight decreased [None]
  - Rheumatoid lung [None]
